FAERS Safety Report 7701290-X (Version None)
Quarter: 2011Q3

REPORT INFORMATION
  Report Type: 
  Country: None (occurrence: None)
  Receive Date: 20110817
  Receipt Date: 20110811
  Transmission Date: 20111222
  Serious: Yes (Hospitalization)
  Sender: FDA-Public Use
  Company Number: TRP_07889_2011

PATIENT
  Age: 70 Year
  Sex: Female

DRUGS (4)
  1. BISOPROLOL FUMARATE [Concomitant]
  2. ANASTROZOLE [Suspect]
     Indication: ANTIOESTROGEN THERAPY
     Dosage: (1 MG QD)
     Dates: start: 20080801, end: 20090101
  3. MANIDIPINE [Concomitant]
  4. RAMIPRIL [Concomitant]

REACTIONS (2)
  - HEPATIC STEATOSIS [None]
  - AUTOIMMUNE HEPATITIS [None]
